FAERS Safety Report 5859618-1 (Version None)
Quarter: 2008Q3

REPORT INFORMATION
  Report Type: 
  Country: None (occurrence: None)
  Receive Date: 20080825
  Receipt Date: 20080814
  Transmission Date: 20090109
  Serious: Yes (Other)
  Sender: FDA-Public Use
  Company Number: 2008-02994

PATIENT
  Sex: Female
  Weight: 61.8 kg

DRUGS (7)
  1. VELCADE [Suspect]
     Indication: MANTLE CELL LYMPHOMA
     Dosage: 1.3 MG/M2, UNK, IV BOLUS
     Route: 040
     Dates: start: 20080630, end: 20080724
  2. RITUXIMAB(RITUXIMAB) INJECTION, 375MG/M2 [Suspect]
     Indication: MANTLE CELL LYMPHOMA
     Dosage: 375 MG/M2, UNK, INTRAVENOUS
     Route: 042
     Dates: start: 20080630, end: 20080721
  3. CYCLOPHOSPHAMIDE [Suspect]
     Indication: MANTLE CELL LYMPHOMA
     Dosage: 300 MG/M2, UNK, INTRAVENOUS
     Route: 042
     Dates: start: 20080630, end: 20080723
  4. DOXORUBICIN HCL [Suspect]
     Indication: MANTLE CELL LYMPHOMA
     Dosage: 25 MG/M2, UNK, INTRAVENOUS
     Route: 042
     Dates: start: 20080630, end: 20080722
  5. VINCRISTINE [Suspect]
     Indication: MANTLE CELL LYMPHOMA
     Dosage: 1 MG, UNK, IV BOLUS
     Route: 040
     Dates: start: 20080630, end: 20080723
  6. DEXAMETHASONE TAB [Suspect]
     Indication: MANTLE CELL LYMPHOMA
     Dosage: 40 MG, UNK, UNK
     Dates: start: 20080630, end: 20080724
  7. NEUPOGEN [Suspect]
     Indication: MANTLE CELL LYMPHOMA
     Dosage: 5 UG/KG, UNK, UNK
     Dates: start: 20080630, end: 20080731

REACTIONS (2)
  - ALOPECIA [None]
  - WHITE BLOOD CELL COUNT DECREASED [None]
